FAERS Safety Report 7299860-9 (Version None)
Quarter: 2011Q1

REPORT INFORMATION
  Report Type: 
  Country: None (occurrence: None)
  Receive Date: 20110217
  Receipt Date: 20110216
  Transmission Date: 20110831
  Serious: Yes (Death, Hospitalization, Other)
  Sender: FDA-Public Use
  Company Number: CA-PFIZER INC-2010167119

PATIENT
  Age: 73 Year
  Sex: Female
  Weight: 72.562 kg

DRUGS (5)
  1. CYKLOKAPRON [Suspect]
     Indication: VAGINAL HAEMORRHAGE
     Dosage: 500 MG, 3X/DAY
     Route: 048
     Dates: start: 20101007, end: 20101008
  2. BISOPROLOL [Concomitant]
     Indication: BLOOD PRESSURE
     Dosage: 1 TABLET, IN THE MORNING
     Dates: start: 20061027
  3. LIPITOR [Concomitant]
     Indication: BLOOD CHOLESTEROL
     Dosage: 10 MG, AT BEDTIME
     Dates: start: 20061027
  4. GLYBURIDE [Concomitant]
     Indication: DIABETES MELLITUS
     Dosage: 5 MG, AS NEEDED WHEN GLUCOSE }10
     Dates: start: 20100913
  5. AVALIDE [Concomitant]
     Indication: BLOOD PRESSURE
     Dosage: 150/12.5 MG, IN THE MORNING
     Dates: start: 20100915

REACTIONS (3)
  - PULMONARY EMBOLISM [None]
  - DRUG INEFFECTIVE [None]
  - VAGINAL HAEMORRHAGE [None]
